FAERS Safety Report 9684461 (Version 1)
Quarter: 2013Q4

REPORT INFORMATION
  Report Type: Spontaneous
  Country: US (occurrence: US)
  Receive Date: 20131112
  Receipt Date: 20131112
  Transmission Date: 20140711
  Serious: No
  Sender: FDA-Public Use
  Company Number: US-009507513-1311USA003925

PATIENT
  Sex: Male

DRUGS (2)
  1. CLARITIN-D-12 [Suspect]
     Indication: SINUSITIS
     Dosage: 5 MG, UNK
     Route: 048
  2. ASPIRIN [Suspect]
     Indication: HEADACHE
     Route: 048

REACTIONS (2)
  - Drug effect decreased [Not Recovered/Not Resolved]
  - Headache [Unknown]
